FAERS Safety Report 17288970 (Version 1)
Quarter: 2020Q1

REPORT INFORMATION
  Report Type: Report from Study
  Country: BR (occurrence: CO)
  Receive Date: 20200120
  Receipt Date: 20200120
  Transmission Date: 20200409
  Serious: Yes (Hospitalization, Other)
  Sender: FDA-Public Use
  Company Number: CO-ASTELLAS-2019US051690

PATIENT
  Age: 35 Year

DRUGS (1)
  1. TACROLIMUS. [Suspect]
     Active Substance: TACROLIMUS
     Indication: PROPHYLAXIS AGAINST TRANSPLANT REJECTION
     Dosage: UNK UNK, UNKNOWN FREQ.
     Route: 048

REACTIONS (5)
  - Feeling of despair [Unknown]
  - Transplant rejection [Unknown]
  - Product dose omission [Unknown]
  - Blood creatinine increased [Unknown]
  - Product availability issue [Unknown]

NARRATIVE: CASE EVENT DATE: 201612
